FAERS Safety Report 11070380 (Version 3)
Quarter: 2015Q3

REPORT INFORMATION
  Report Type: Report from Study
  Country: US (occurrence: US)
  Receive Date: 20150427
  Receipt Date: 20150820
  Transmission Date: 20151125
  Serious: Yes (Other)
  Sender: FDA-Public Use
  Company Number: US-SA-2014SA150895

PATIENT
  Age: 66 Year
  Sex: Male

DRUGS (4)
  1. AMINOPYRIDINE [Concomitant]
     Active Substance: DALFAMPRIDINE
     Dates: start: 20040101
  2. AUBAGIO [Suspect]
     Active Substance: TERIFLUNOMIDE
     Indication: MULTIPLE SCLEROSIS
     Route: 048
     Dates: start: 20121012, end: 20121108
  3. AUBAGIO [Suspect]
     Active Substance: TERIFLUNOMIDE
     Indication: MULTIPLE SCLEROSIS
     Route: 048
     Dates: start: 20141213
  4. PROVIGIL [Concomitant]
     Active Substance: MODAFINIL
     Dates: start: 19940101

REACTIONS (3)
  - Multiple sclerosis [Unknown]
  - Pollakiuria [Unknown]
  - Gait disturbance [Recovering/Resolving]
